FAERS Safety Report 17453785 (Version 1)
Quarter: 2020Q1

REPORT INFORMATION
  Report Type: Report from Study
  Country: None (occurrence: GB)
  Receive Date: 20200224
  Receipt Date: 20200224
  Transmission Date: 20200409
  Serious: Yes (Other)
  Sender: FDA-Public Use
  Company Number: GB-ABBVIE-19P-167-2705423-00

PATIENT
  Age: 50 Year
  Sex: Female
  Weight: 109.6 kg

DRUGS (2)
  1. VENETOCLAX. [Suspect]
     Active Substance: VENETOCLAX
     Indication: CHRONIC LYMPHOCYTIC LEUKAEMIA
     Route: 048
     Dates: start: 20181121, end: 20190904
  2. IBRUTINIB [Suspect]
     Active Substance: IBRUTINIB
     Indication: CHRONIC LYMPHOCYTIC LEUKAEMIA
     Route: 048
     Dates: start: 20180928, end: 20190806

REACTIONS (14)
  - Eye pain [Recovered/Resolved]
  - Ocular hyperaemia [Recovered/Resolved]
  - Uveitis [Recovered/Resolved]
  - Ocular discomfort [Recovered/Resolved]
  - Eye irritation [Recovered/Resolved]
  - Eye pain [Recovered/Resolved]
  - Inflammation [Recovered/Resolved]
  - Iritis [Recovered/Resolved]
  - Iris haemorrhage [Recovered/Resolved]
  - Macular oedema [Recovered/Resolved]
  - Vision blurred [Recovered/Resolved]
  - Blindness unilateral [Recovered/Resolved]
  - Iris adhesions [Recovered/Resolved]
  - Visual impairment [Recovered/Resolved]

NARRATIVE: CASE EVENT DATE: 20181023
